FAERS Safety Report 10146891 (Version 2)
Quarter: 2014Q2

REPORT INFORMATION
  Report Type: Spontaneous
  Country: US (occurrence: US)
  Receive Date: 20140501
  Receipt Date: 20140501
  Transmission Date: 20141212
  Serious: Yes (Other)
  Sender: FDA-Public Use
  Company Number: US-GLAXOSMITHKLINE-A0893901A

PATIENT
  Age: 54 Year
  Sex: Male
  Weight: 121.4 kg

DRUGS (1)
  1. AVANDIA [Suspect]
     Indication: DIABETES MELLITUS
     Route: 048

REACTIONS (8)
  - Myocardial infarction [Unknown]
  - Weight increased [Unknown]
  - Haemorrhagic stroke [Unknown]
  - Vision blurred [Unknown]
  - Cardiac failure congestive [Unknown]
  - Blindness [Unknown]
  - Angioplasty [Unknown]
  - Cerebrovascular accident [Unknown]
